FAERS Safety Report 23299959 (Version 2)
Quarter: 2023Q4

REPORT INFORMATION
  Report Type: Spontaneous
  Country: US (occurrence: US)
  Receive Date: 20231215
  Receipt Date: 20231223
  Transmission Date: 20240110
  Serious: No
  Sender: FDA-Public Use
  Company Number: US-ABBVIE-5539031

PATIENT
  Sex: Female

DRUGS (1)
  1. LEXAPRO [Suspect]
     Active Substance: ESCITALOPRAM OXALATE
     Indication: Anxiety
     Route: 048
     Dates: start: 202311

REACTIONS (2)
  - Drug hypersensitivity [Unknown]
  - Adverse drug reaction [Unknown]
